FAERS Safety Report 21385148 (Version 1)
Quarter: 2022Q3

REPORT INFORMATION
  Report Type: Spontaneous
  Country: GB (occurrence: GB)
  Receive Date: 20220928
  Receipt Date: 20220928
  Transmission Date: 20221027
  Serious: Yes (Life-Threatening, Hospitalization)
  Sender: FDA-Public Use
  Company Number: GB-STRIDES ARCOLAB LIMITED-2022SP012270

PATIENT
  Sex: Male

DRUGS (25)
  1. GABAPENTIN [Interacting]
     Active Substance: GABAPENTIN
     Indication: Complex regional pain syndrome
     Dosage: 300 MILLIGRAM, TID
     Route: 065
  2. GABAPENTIN [Interacting]
     Active Substance: GABAPENTIN
     Dosage: UNK, (RESTARTED ON POSTOPERATIVE DAY 4)
     Route: 065
  3. BACLOFEN [Interacting]
     Active Substance: BACLOFEN
     Indication: Complex regional pain syndrome
     Dosage: 860 MICROGRAM, PER 24 HRS
     Route: 037
  4. BACLOFEN [Interacting]
     Active Substance: BACLOFEN
     Dosage: 430 MICROGRAM, PER 24 HRS (2 MG/ML BACLOFEN)
     Route: 037
  5. BACLOFEN [Interacting]
     Active Substance: BACLOFEN
     Dosage: UNK
     Route: 048
  6. AMITRIPTYLINE [Concomitant]
     Active Substance: AMITRIPTYLINE
     Indication: Complex regional pain syndrome
     Dosage: 25 MILLIGRAM, UNKNOWN
     Route: 065
  7. AMITRIPTYLINE [Concomitant]
     Active Substance: AMITRIPTYLINE
     Dosage: UNK, (RESTARTED ON POSTOPERATIVE DAY 4)
     Route: 065
  8. TRAMADOL [Concomitant]
     Active Substance: TRAMADOL
     Indication: Complex regional pain syndrome
     Dosage: UNK, TID, (50-100MG-AS OCCASION REQUIRES)
     Route: 065
  9. TRAMADOL [Concomitant]
     Active Substance: TRAMADOL
     Dosage: UNK, (RESTARTED ON POSTOPERATIVE DAY 4)
     Route: 065
  10. MIRTAZAPINE [Concomitant]
     Active Substance: MIRTAZAPINE
     Indication: Complex regional pain syndrome
     Dosage: 45 MILLIGRAM, UNKNOWN
     Route: 065
  11. MIRTAZAPINE [Concomitant]
     Active Substance: MIRTAZAPINE
     Dosage: UNK (RESTARTED ON POSTOPERATIVE DAY 4)
     Route: 065
  12. QUETIAPINE [Concomitant]
     Active Substance: QUETIAPINE
     Indication: Complex regional pain syndrome
     Dosage: 50 MILLIGRAM PER DAY
     Route: 065
  13. QUETIAPINE [Concomitant]
     Active Substance: QUETIAPINE
     Dosage: 100 MILLIGRAM (RESTARTED ON POSTOPERATIVE DAY 4)
     Route: 065
  14. ZOPICLONE [Concomitant]
     Active Substance: ZOPICLONE
     Indication: Complex regional pain syndrome
     Dosage: 7.5 MILLIGRAM PER DAY
     Route: 065
  15. ZOPICLONE [Concomitant]
     Active Substance: ZOPICLONE
     Dosage: UNK, (RESTARTED ON POSTOPERATIVE DAY 4)
     Route: 065
  16. LIDOCAINE [Concomitant]
     Active Substance: LIDOCAINE
     Indication: Complex regional pain syndrome
     Dosage: UNK, TT OD
     Route: 065
  17. NAPROXEN [Concomitant]
     Active Substance: NAPROXEN
     Indication: Complex regional pain syndrome
     Dosage: 500 MILLIGRAM, BID
     Route: 065
  18. MEFENAMIC ACID [Concomitant]
     Active Substance: MEFENAMIC ACID
     Indication: Complex regional pain syndrome
     Dosage: 500 MILLIGRAM, TID (AS REQUIRED)
     Route: 065
  19. PANTOPRAZOLE [Concomitant]
     Active Substance: PANTOPRAZOLE
     Indication: Drug therapy
     Dosage: 40 MILLIGRAM, PER DAY
     Route: 065
  20. NICORETTE [Concomitant]
     Active Substance: NICOTINE
     Indication: Product used for unknown indication
     Dosage: 25 MILLIGRAM, EVERY MORNING (PER DAY)
     Route: 065
  21. ATROPINE [Concomitant]
     Active Substance: ATROPINE
     Indication: Bradycardia
     Dosage: 1.2 GRAM, UNKNOWN
     Route: 042
     Dates: start: 201911
  22. CHLORHEXIDINE [Concomitant]
     Active Substance: CHLORHEXIDINE
     Indication: Product used for unknown indication
     Dosage: UNK, (DURING SURGERY)
     Route: 065
  23. BUPIVACAINE [Concomitant]
     Active Substance: BUPIVACAINE
     Indication: Product used for unknown indication
     Dosage: UNK, (DURING SURGERY)
     Route: 065
  24. EPINEPHRINE [Concomitant]
     Active Substance: EPINEPHRINE
     Indication: Product used for unknown indication
     Dosage: UNK, (DURING SURGERY)
     Route: 065
  25. LEVETIRACETAM [Concomitant]
     Active Substance: LEVETIRACETAM
     Indication: Generalised tonic-clonic seizure
     Dosage: UNK, (LOADING DOSE)
     Route: 065

REACTIONS (2)
  - Brain stem syndrome [Recovered/Resolved]
  - Potentiating drug interaction [Unknown]
